FAERS Safety Report 5166436-9 (Version None)
Quarter: 2006Q4

REPORT INFORMATION
  Report Type: 
  Country: None (occurrence: None)
  Receive Date: 20061207
  Receipt Date: 20061127
  Transmission Date: 20070319
  Serious: Yes (Other)
  Sender: FDA-Public Use
  Company Number: PHBS2006BE18415

PATIENT
  Age: 75 Year
  Sex: Male

DRUGS (10)
  1. AREDIA [Suspect]
     Dosage: 90 MG, EVERY 4 WEEKS
     Route: 042
     Dates: start: 19981005, end: 20020213
  2. EFFORTIL [Concomitant]
     Indication: ORTHOSTATIC HYPOTENSION
     Dosage: UNK, TID
     Route: 065
     Dates: start: 20010829
  3. ZOVIRAX [Concomitant]
     Indication: PROPHYLAXIS
     Route: 065
     Dates: start: 19990618, end: 19990622
  4. ZOVIRAX [Concomitant]
     Route: 065
     Dates: start: 19990714, end: 19991022
  5. MELPHALAN [Concomitant]
     Indication: MULTIPLE MYELOMA
     Dosage: UNK, 12 CYCLES
     Route: 065
     Dates: start: 19981101, end: 20000301
  6. MELPHALAN [Concomitant]
     Dosage: UNK, 6 CYCLES
     Route: 065
     Dates: start: 20010301, end: 20010801
  7. PREDNISONE TAB [Concomitant]
     Indication: MULTIPLE MYELOMA
     Dosage: UNK, 6 CYCLES
     Route: 065
     Dates: start: 20010301, end: 20010801
  8. ZOLADEX [Concomitant]
     Indication: PROSTATE CANCER
     Dosage: UNK, EVERY 3 MONTHS
     Route: 065
     Dates: start: 20011001, end: 20031201
  9. ANDROCUR [Concomitant]
     Route: 065
     Dates: end: 20011201
  10. BONEFOS [Concomitant]
     Indication: MULTIPLE MYELOMA
     Dosage: 2 DF, QD
     Route: 065
     Dates: start: 20020701, end: 20021001

REACTIONS (8)
  - ABSCESS JAW [None]
  - ACTINOMYCOSIS [None]
  - BONE DEBRIDEMENT [None]
  - BREATH ODOUR [None]
  - OSTEOLYSIS [None]
  - OSTEONECROSIS [None]
  - TOOTH EXTRACTION [None]
  - TOOTH REPAIR [None]
